FAERS Safety Report 8155430-1 (Version None)
Quarter: 2012Q1

REPORT INFORMATION
  Report Type: 
  Country: None (occurrence: None)
  Receive Date: 20120207
  Receipt Date: 20120203
  Transmission Date: 20120608
  Serious: Yes (Other)
  Sender: FDA-Public Use
  Company Number: 2012030992

PATIENT
  Age: 70 Year
  Sex: Female

DRUGS (1)
  1. VIVAGLOBIN [Suspect]
     Indication: RESPIRATORY TRACT INFECTION
     Dates: start: 20110909, end: 20111027

REACTIONS (9)
  - EYE PAIN [None]
  - ARTHRALGIA [None]
  - VERTIGO [None]
  - EAR PAIN [None]
  - HEADACHE [None]
  - BONE PAIN [None]
  - VISION BLURRED [None]
  - FATIGUE [None]
  - OFF LABEL USE [None]
